FAERS Safety Report 21242512 (Version 1)
Quarter: 2022Q3

REPORT INFORMATION
  Report Type: Spontaneous
  Country: US (occurrence: None)
  Receive Date: 20220822
  Receipt Date: 20220822
  Transmission Date: 20221027
  Serious: Yes (Death)
  Sender: FDA-Public Use
  Company Number: None

PATIENT
  Age: 74 Year
  Sex: Female

DRUGS (8)
  1. CAPECITABINE [Suspect]
     Active Substance: CAPECITABINE
     Indication: Breast cancer female
     Dosage: TAKE 3 TABLETS BY MOUTH TWICE DAILY FOR 14 DAYS FOLLOWED BY A 7 DAY REST PERIOD?
     Route: 048
     Dates: start: 20210322
  2. ATIVAN TAB [Concomitant]
  3. DEXAMETHASONE [Concomitant]
     Active Substance: DEXAMETHASONE
  4. ELIQUIS [Concomitant]
     Active Substance: APIXABAN
  5. FASLODEX INJ [Concomitant]
  6. L-THEANINE CAP [Concomitant]
  7. LOPRESSOR TAB [Concomitant]
  8. MELATONIN TAB [Concomitant]

REACTIONS (1)
  - Death [None]

NARRATIVE: CASE EVENT DATE: 20220813
